FAERS Safety Report 6718036-4 (Version None)
Quarter: 2010Q2

REPORT INFORMATION
  Report Type: 
  Country: None (occurrence: None)
  Receive Date: 20100510
  Receipt Date: 20100428
  Transmission Date: 20101027
  Serious: Yes (Other)
  Sender: FDA-Public Use
  Company Number: PHHY2010US27743

PATIENT

DRUGS (1)
  1. EXELON [Suspect]
     Dosage: UNK
     Route: 062

REACTIONS (2)
  - SKIN IRRITATION [None]
  - STEVENS-JOHNSON SYNDROME [None]
